FAERS Safety Report 5157345-X (Version None)
Quarter: 2006Q4

REPORT INFORMATION
  Report Type: 
  Country: None (occurrence: None)
  Receive Date: 20061127
  Receipt Date: 20061121
  Transmission Date: 20070319
  Serious: Yes (Death, Life-Threatening)
  Sender: FDA-Public Use
  Company Number: IL-NOVOPROD-258737

PATIENT
  Age: 56 Year
  Sex: Male
  Weight: 80 kg

DRUGS (3)
  1. NOVOSEVEN [Suspect]
     Indication: TRAUMATIC INTRACRANIAL HAEMORRHAGE
     Dosage: 7.2 MG, QD
     Dates: start: 20061117
  2. CRYOPRECIPITATES [Concomitant]
     Dates: start: 20061117
  3. FRESH FROZEN PLASMA [Concomitant]
     Dosage: UNK, UNK
     Dates: start: 20061117

REACTIONS (1)
  - DRUG INEFFECTIVE [None]
